FAERS Safety Report 7578210-4 (Version None)
Quarter: 2011Q2

REPORT INFORMATION
  Report Type: 
  Country: None (occurrence: None)
  Receive Date: 20110628
  Receipt Date: 20110620
  Transmission Date: 20111010
  Serious: Yes (Hospitalization)
  Sender: FDA-Public Use
  Company Number: B0710772A

PATIENT
  Sex: Male
  Weight: 29 kg

DRUGS (8)
  1. CYCLOSPORINE [Concomitant]
     Indication: IMMUNOSUPPRESSION
     Dosage: 45MG PER DAY
     Route: 065
     Dates: start: 20080825
  2. HICALIQ [Suspect]
     Dosage: 700ML PER DAY
     Route: 042
     Dates: start: 20080903, end: 20080908
  3. ALKERAN [Suspect]
     Indication: CORD BLOOD TRANSPLANT THERAPY
     Dosage: 40MGM2 PER DAY
     Route: 042
     Dates: start: 20080821, end: 20080822
  4. KYTRIL [Concomitant]
     Dosage: 80ML PER DAY
     Route: 042
     Dates: start: 20080821, end: 20080826
  5. HICALIQ [Suspect]
     Dosage: 700ML PER DAY
     Route: 042
     Dates: start: 20080909, end: 20080918
  6. METHOTREXATE [Concomitant]
     Indication: IMMUNOSUPPRESSION
     Dosage: 10MG PER DAY
     Route: 065
     Dates: start: 20080827, end: 20080901
  7. FLUDARABINE PHOSPHATE [Suspect]
     Indication: CORD BLOOD TRANSPLANT THERAPY
     Dosage: 25MGM2 PER DAY
     Route: 042
     Dates: start: 20080820, end: 20080824
  8. VICCLOX [Concomitant]
     Dosage: 150MG PER DAY
     Route: 042
     Dates: start: 20080822, end: 20081009

REACTIONS (5)
  - DIARRHOEA [None]
  - STOMATITIS [None]
  - C-REACTIVE PROTEIN INCREASED [None]
  - PYREXIA [None]
  - ABDOMINAL PAIN [None]
